FAERS Safety Report 24125534 (Version 1)
Quarter: 2024Q3

REPORT INFORMATION
  Report Type: Report from Study
  Country: US (occurrence: None)
  Receive Date: 20240723
  Receipt Date: 20240723
  Transmission Date: 20241016
  Serious: Yes (Other)
  Sender: ASTRAZENECA
  Company Number: 2024A165944

PATIENT
  Sex: Female

DRUGS (1)
  1. TAGRISSO [Suspect]
     Active Substance: OSIMERTINIB
     Indication: Lung carcinoma cell type unspecified stage 0
     Route: 048
     Dates: start: 202305

REACTIONS (8)
  - Seizure like phenomena [Unknown]
  - Dizziness [Unknown]
  - Nausea [Unknown]
  - Mental impairment [Unknown]
  - Speech disorder [Unknown]
  - Brain fog [Unknown]
  - Muscle spasms [Unknown]
  - Headache [Unknown]
